FAERS Safety Report 5220262-0 (Version None)
Quarter: 2006Q4

REPORT INFORMATION
  Report Type: 
  Country: None (occurrence: None)
  Receive Date: 20061201
  Receipt Date: 20060712
  Transmission Date: 20070319
  Serious: No
  Sender: FDA-Public Use
  Company Number: 2006PV017455

PATIENT
  Age: 44 Year
  Sex: Female
  Weight: 131.5431 kg

DRUGS (4)
  1. BYETTA [Suspect]
     Indication: DIABETES MELLITUS NON-INSULIN-DEPENDENT
     Dosage: 5 MCG; BID; SC
     Route: 058
     Dates: start: 20060607
  2. ACTOS [Concomitant]
  3. ACTOS [Concomitant]
  4. CADUET [Concomitant]

REACTIONS (4)
  - BLOOD GLUCOSE INCREASED [None]
  - FOOD CRAVING [None]
  - INJECTION SITE IRRITATION [None]
  - INJECTION SITE PAIN [None]
